FAERS Safety Report 13265494 (Version 2)
Quarter: 2017Q1

REPORT INFORMATION
  Report Type: Spontaneous
  Country: US (occurrence: US)
  Receive Date: 20170223
  Receipt Date: 20170303
  Transmission Date: 20170428
  Serious: Yes (Other)
  Sender: FDA-Public Use
  Company Number: US-JNJFOC-20170216072

PATIENT

DRUGS (2)
  1. IBRUTINIB [Suspect]
     Active Substance: IBRUTINIB
     Indication: LYMPHOCYTIC LYMPHOMA
     Route: 048
  2. IBRUTINIB [Suspect]
     Active Substance: IBRUTINIB
     Indication: CHRONIC LYMPHOCYTIC LEUKAEMIA
     Route: 048

REACTIONS (15)
  - Ventricular extrasystoles [Unknown]
  - Abdominal pain [Unknown]
  - Rash [Unknown]
  - Obliterative bronchiolitis [Unknown]
  - Haematoma [Unknown]
  - Panniculitis [Unknown]
  - Arthralgia [Unknown]
  - Conjunctival haemorrhage [Unknown]
  - Febrile neutropenia [Recovered/Resolved]
  - Diarrhoea [Unknown]
  - Ecchymosis [Unknown]
  - Vision blurred [Unknown]
  - Subdural haematoma [Recovered/Resolved]
  - Myalgia [Unknown]
  - Fatigue [Unknown]
